FAERS Safety Report 6147779-9 (Version None)
Quarter: 2009Q2

REPORT INFORMATION
  Report Type: 
  Country: None (occurrence: None)
  Receive Date: 20090408
  Receipt Date: 20090401
  Transmission Date: 20091009
  Serious: Yes (Hospitalization)
  Sender: FDA-Public Use
  Company Number: US-AVENTIS-200912134US

PATIENT
  Sex: Female
  Weight: 90.72 kg

DRUGS (6)
  1. LANTUS [Suspect]
     Route: 058
  2. OPTICLIK (INSULIN INJECTION PEN) [Suspect]
     Dates: start: 20050101
  3. NEURONTIN [Concomitant]
  4. LISINOPRIL [Concomitant]
     Dosage: DOSE: UNK
  5. UNKNOWN DRUG [Concomitant]
     Indication: CHRONIC OBSTRUCTIVE PULMONARY DISEASE
     Dosage: DOSE: 4 TIMES
  6. GLUCOPHAGE [Concomitant]
     Indication: DIABETES MELLITUS
     Dosage: DOSE: 1/2 TAB

REACTIONS (3)
  - BLOOD GLUCOSE INCREASED [None]
  - DEPRESSION [None]
  - EXPIRED DRUG ADMINISTERED [None]
